FAERS Safety Report 19971844 (Version 1)
Quarter: 2021Q4

REPORT INFORMATION
  Report Type: Spontaneous
  Country: DE (occurrence: DE)
  Receive Date: 20211020
  Receipt Date: 20211020
  Transmission Date: 20220304
  Serious: Yes (Hospitalization, Other)
  Sender: FDA-Public Use
  Company Number: DE-002147023-NVSC2021DE231221

PATIENT
  Sex: Male

DRUGS (1)
  1. DEXAMETHASONE [Suspect]
     Active Substance: DEXAMETHASONE
     Indication: Product used for unknown indication
     Dosage: UNK
     Route: 065

REACTIONS (12)
  - General physical health deterioration [Unknown]
  - Epilepsy [Unknown]
  - Confusional state [Unknown]
  - Lymphangitis [Unknown]
  - Lung adenocarcinoma [Unknown]
  - Lumbar vertebral fracture [Unknown]
  - Metastases to central nervous system [Unknown]
  - Malignant mediastinal neoplasm [Unknown]
  - Neoplasm recurrence [Unknown]
  - Metastases to lung [Unknown]
  - Leukopenia [Unknown]
  - Brain oedema [Unknown]

NARRATIVE: CASE EVENT DATE: 20190601
